FAERS Safety Report 10395343 (Version 1)
Quarter: 2014Q1

REPORT INFORMATION
  Report Type: Spontaneous
  Country: US (occurrence: None)
  Receive Date: 20130103
  Receipt Date: 20130103
  Transmission Date: 20141002
  Serious: Yes (Other)
  Sender: FDA-Public Use
  Company Number: DSA_47351_2011

PATIENT
  Sex: Female

DRUGS (1)
  1. XENAZINE 12.5 MG (NOT SPECIFIED) [Suspect]
     Indication: HUNTINGTON^S DISEASE
     Dosage: 37.5 MG QAM, 25 MG IN THE AFTERNOON, 37.5 MG QPM ORAL
     Route: 048
     Dates: start: 201010

REACTIONS (1)
  - Depression [None]
